FAERS Safety Report 17367566 (Version 1)
Quarter: 2020Q1

REPORT INFORMATION
  Report Type: Spontaneous
  Country: US (occurrence: US)
  Receive Date: 20200203
  Receipt Date: 20200203
  Transmission Date: 20200409
  Serious: Yes (Life-Threatening, Hospitalization, Other)
  Sender: FDA-Public Use
  Company Number: None

PATIENT
  Age: 38 Year
  Sex: Female
  Weight: 72 kg

DRUGS (1)
  1. TOPAMAX [Suspect]
     Active Substance: TOPIRAMATE
     Indication: EPILEPSY
     Route: 048
     Dates: start: 20191105, end: 20191205

REACTIONS (5)
  - Chest pain [None]
  - Thinking abnormal [None]
  - Tongue ulceration [None]
  - Seizure [None]
  - Insomnia [None]

NARRATIVE: CASE EVENT DATE: 20191121
